FAERS Safety Report 17069187 (Version 1)
Quarter: 2019Q4

REPORT INFORMATION
  Report Type: Spontaneous
  Country: US (occurrence: US)
  Receive Date: 20191124
  Receipt Date: 20191124
  Transmission Date: 20200122
  Serious: No
  Sender: FDA-Public Use
  Company Number: US-009507513-1911USA009382

PATIENT

DRUGS (1)
  1. TEMODAR [Suspect]
     Active Substance: TEMOZOLOMIDE
     Dosage: 140 MILLIGRAM, NIGHTLY FOR 5 DAYS
     Route: 048

REACTIONS (2)
  - Intentional underdose [Unknown]
  - No adverse event [Unknown]
